FAERS Safety Report 12255343 (Version 2)
Quarter: 2016Q2

REPORT INFORMATION
  Report Type: Spontaneous
  Country: DE (occurrence: DE)
  Receive Date: 20160412
  Receipt Date: 20160413
  Transmission Date: 20160815
  Serious: Yes (Other)
  Sender: FDA-Public Use
  Company Number: DE-UCBSA-8021697

PATIENT
  Sex: Female

DRUGS (3)
  1. KEPPRA [Suspect]
     Active Substance: LEVETIRACETAM
     Indication: EPILEPSY
     Dosage: 1000 MG, 2X/DAY (BID)
     Route: 048
     Dates: start: 200204
  2. KEPPRA [Suspect]
     Active Substance: LEVETIRACETAM
     Dosage: 1500 MG, 2X/DAY (BID)
     Route: 048
     Dates: start: 200608
  3. RISPERDAL [Concomitant]
     Active Substance: RISPERIDONE

REACTIONS (8)
  - Headache [Not Recovered/Not Resolved]
  - Blood prolactin increased [Unknown]
  - Petit mal epilepsy [Not Recovered/Not Resolved]
  - Status epilepticus [Unknown]
  - Galactorrhoea [Unknown]
  - Hirsutism [Unknown]
  - Epileptic aura [Unknown]
  - Generalised tonic-clonic seizure [Recovered/Resolved]

NARRATIVE: CASE EVENT DATE: 2006
